FAERS Safety Report 8139404-2 (Version None)
Quarter: 2012Q1

REPORT INFORMATION
  Report Type: 
  Country: None (occurrence: None)
  Receive Date: 20120215
  Receipt Date: 20120104
  Transmission Date: 20120608
  Serious: Yes (Death, Other)
  Sender: FDA-Public Use
  Company Number: US-COVIDIEN/TYCO HEALTHCARE/MALLINCKRODT-T201200291

PATIENT
  Age: 19 Year
  Sex: Female

DRUGS (3)
  1. IBUPROFEN [Suspect]
     Route: 048
  2. HYDROCODONE BITARTRATE AND ACETAMINOPHEN [Suspect]
     Route: 048
  3. SALICYLATES NOS [Suspect]
     Route: 048

REACTIONS (6)
  - MULTI-ORGAN FAILURE [None]
  - CONVULSION [None]
  - CARDIAC ARREST [None]
  - COMPLETED SUICIDE [None]
  - RHYTHM IDIOVENTRICULAR [None]
  - MULTIPLE DRUG OVERDOSE [None]
